FAERS Safety Report 16389083 (Version 2)
Quarter: 2020Q1

REPORT INFORMATION
  Report Type: Spontaneous
  Country: GB (occurrence: GB)
  Receive Date: 20190604
  Receipt Date: 20200121
  Transmission Date: 20200409
  Serious: Yes (Other)
  Sender: FDA-Public Use
  Company Number: GB-OTSUKA-2019_021723

PATIENT
  Age: 57 Year
  Sex: Female
  Weight: 67 kg

DRUGS (5)
  1. DEPAKOTE [Suspect]
     Active Substance: DIVALPROEX SODIUM
     Indication: EUPHORIC MOOD
     Dosage: 750 MG, QD
     Route: 048
     Dates: start: 20160213
  2. ARIPIPRAZOLE. [Suspect]
     Active Substance: ARIPIPRAZOLE
     Indication: PRODUCT USED FOR UNKNOWN INDICATION
     Dosage: 10 MG, QD
     Route: 048
     Dates: start: 20190329
  3. ELLESTE-DUET [Concomitant]
     Indication: HORMONE REPLACEMENT THERAPY
     Dosage: 5 MG, QW
     Route: 065
  4. ARIPIPRAZOLE. [Suspect]
     Active Substance: ARIPIPRAZOLE
     Dosage: UNK (DOSE INCREASED)
     Route: 065
  5. DEPAKOTE [Suspect]
     Active Substance: DIVALPROEX SODIUM
     Dosage: 250 MG, UNK
     Route: 065

REACTIONS (5)
  - Withdrawal syndrome [Unknown]
  - Vision blurred [Unknown]
  - Gingival disorder [Not Recovered/Not Resolved]
  - Tooth disorder [Not Recovered/Not Resolved]
  - Muscle spasms [Unknown]
